FAERS Safety Report 8473029-4 (Version None)
Quarter: 2012Q2

REPORT INFORMATION
  Report Type: 
  Country: None (occurrence: None)
  Receive Date: 20120627
  Receipt Date: 20120604
  Transmission Date: 20120825
  Serious: No
  Sender: FDA-Public Use
  Company Number: US-BAYER-2012-056394

PATIENT
  Age: 55 Year
  Sex: Female
  Weight: 122 kg

DRUGS (6)
  1. ALEVE (CAPLET) [Suspect]
  2. ANALGESICS [Concomitant]
  3. ASPIRIN [Concomitant]
     Dosage: 81 MG, UNK
  4. NAPROXEN (ALEVE) [Suspect]
     Dosage: 1 DF, ONCE
     Route: 048
     Dates: start: 20120401, end: 20120603
  5. VOLTAREN [Concomitant]
  6. NSAID'S [Concomitant]

REACTIONS (4)
  - DIZZINESS [None]
  - RASH MACULAR [None]
  - SKIN DISCOLOURATION [None]
  - VISION BLURRED [None]
